FAERS Safety Report 14573048 (Version 1)
Quarter: 2018Q1

REPORT INFORMATION
  Report Type: Spontaneous
  Country: US (occurrence: US)
  Receive Date: 20180223
  Receipt Date: 20180223
  Transmission Date: 20180509
  Serious: No
  Sender: FDA-Public Use
  Company Number: None

PATIENT
  Age: 69 Year
  Sex: Female
  Weight: 99 kg

DRUGS (9)
  1. ALDACTONE [Concomitant]
     Active Substance: SPIRONOLACTONE
  2. PROVENTIL [Concomitant]
     Active Substance: ALBUTEROL
  3. MONTELUKAST [Suspect]
     Active Substance: MONTELUKAST SODIUM
     Indication: ASTHMA
     Dosage: ?          QUANTITY:1 TABLET(S);?
     Route: 048
     Dates: start: 20180105, end: 20180215
  4. ALBUTEROL. [Concomitant]
     Active Substance: ALBUTEROL
  5. COZAAR [Concomitant]
     Active Substance: LOSARTAN POTASSIUM
  6. CAPA [Concomitant]
  7. LASIX [Concomitant]
     Active Substance: FUROSEMIDE
  8. KLOR-CON [Concomitant]
     Active Substance: POTASSIUM CHLORIDE
  9. METFORMIN [Concomitant]
     Active Substance: METFORMIN HYDROCHLORIDE

REACTIONS (1)
  - Asthma [None]

NARRATIVE: CASE EVENT DATE: 20180106
